FAERS Safety Report 10714108 (Version 3)
Quarter: 2015Q2

REPORT INFORMATION
  Report Type: Spontaneous
  Country: US (occurrence: US)
  Receive Date: 20150115
  Receipt Date: 20150421
  Transmission Date: 20150821
  Serious: Yes (Hospitalization, Congenital Anomaly)
  Sender: FDA-Public Use
  Company Number: US-APOTEX-2015AP005195

PATIENT
  Age: 0 Day
  Sex: Female
  Weight: 3.7 kg

DRUGS (3)
  1. PAXIL [Suspect]
     Active Substance: PAROXETINE HYDROCHLORIDE
     Indication: MAJOR DEPRESSION
     Dosage: 20 MG, DAILY
     Route: 064
     Dates: start: 2000, end: 20010508
  2. PAXIL [Suspect]
     Active Substance: PAROXETINE HYDROCHLORIDE
     Dosage: 20 UNK, DAILY
     Dates: start: 20010620
  3. SYNTHROID [Concomitant]
     Active Substance: LEVOTHYROXINE SODIUM
     Indication: HYPERTHYROIDISM
     Route: 064

REACTIONS (5)
  - Foetal exposure during pregnancy [Unknown]
  - Dyslexia [Unknown]
  - Attention deficit/hyperactivity disorder [Unknown]
  - Atrial septal defect [Unknown]
  - Cardiac disorder [Unknown]

NARRATIVE: CASE EVENT DATE: 20011126
